FAERS Safety Report 5087057-2 (Version None)
Quarter: 2006Q3

REPORT INFORMATION
  Report Type: 
  Country: None (occurrence: None)
  Receive Date: 20060821
  Receipt Date: 20060807
  Transmission Date: 20061208
  Serious: Yes (Other)
  Sender: FDA-Public Use
  Company Number: 2006097725

PATIENT
  Age: 28 Year
  Sex: Female

DRUGS (1)
  1. RELPAX [Suspect]
     Indication: MIGRAINE

REACTIONS (5)
  - BINGE EATING [None]
  - DIZZINESS [None]
  - FATIGUE [None]
  - HYPOTONIA [None]
  - IMPAIRED DRIVING ABILITY [None]
